FAERS Safety Report 5542722-5 (Version None)
Quarter: 2007Q4

REPORT INFORMATION
  Report Type: 
  Country: None (occurrence: None)
  Receive Date: 20071123
  Receipt Date: 20070510
  Transmission Date: 20080405
  Serious: Yes (Other)
  Sender: FDA-Public Use
  Company Number: US-JNJFOC-20070305893

PATIENT
  Age: 58 Year
  Sex: Female
  Weight: 72.5755 kg

DRUGS (3)
  1. LEVAQUIN [Suspect]
     Indication: SINUSITIS
     Dosage: 500 MG, 1 IN 1 DAY, OROPHARINGEAL
     Route: 049
     Dates: start: 20070307, end: 20070314
  2. VALIUM [Concomitant]
  3. PREDNISONE [Concomitant]

REACTIONS (7)
  - ARTHRALGIA [None]
  - MUSCULOSKELETAL PAIN [None]
  - MYALGIA [None]
  - NECK PAIN [None]
  - PAIN [None]
  - RASH [None]
  - TENDON RUPTURE [None]
